FAERS Safety Report 20008118 (Version 1)
Quarter: 2021Q4

REPORT INFORMATION
  Report Type: Report from Study
  Country: FR (occurrence: FR)
  Receive Date: 20211029
  Receipt Date: 20211029
  Transmission Date: 20220303
  Serious: Yes (Hospitalization, Other)
  Sender: FDA-Public Use
  Company Number: FR-TAKEDA-2021TUS064829

PATIENT
  Age: 10 Year
  Sex: Male

DRUGS (12)
  1. TEDUGLUTIDE [Suspect]
     Active Substance: TEDUGLUTIDE
     Indication: Short-bowel syndrome
     Dosage: 1.6 MILLIGRAM, QD
     Route: 065
     Dates: start: 20190404, end: 20210511
  2. TEDUGLUTIDE [Suspect]
     Active Substance: TEDUGLUTIDE
     Indication: Short-bowel syndrome
     Dosage: 1.6 MILLIGRAM, QD
     Route: 065
     Dates: start: 20190404, end: 20210511
  3. TEDUGLUTIDE [Suspect]
     Active Substance: TEDUGLUTIDE
     Indication: Short-bowel syndrome
     Dosage: 1.6 MILLIGRAM, QD
     Route: 065
     Dates: start: 20190404, end: 20210511
  4. TEDUGLUTIDE [Suspect]
     Active Substance: TEDUGLUTIDE
     Indication: Short-bowel syndrome
     Dosage: 1.6 MILLIGRAM, QD
     Route: 065
     Dates: start: 20190404, end: 20210511
  5. TEDUGLUTIDE [Suspect]
     Active Substance: TEDUGLUTIDE
     Dosage: 1.7 MILLIGRAM, QD
     Route: 065
     Dates: start: 20210511
  6. TEDUGLUTIDE [Suspect]
     Active Substance: TEDUGLUTIDE
     Dosage: 1.7 MILLIGRAM, QD
     Route: 065
     Dates: start: 20210511
  7. TEDUGLUTIDE [Suspect]
     Active Substance: TEDUGLUTIDE
     Dosage: 1.7 MILLIGRAM, QD
     Route: 065
     Dates: start: 20210511
  8. TEDUGLUTIDE [Suspect]
     Active Substance: TEDUGLUTIDE
     Dosage: 1.7 MILLIGRAM, QD
     Route: 065
     Dates: start: 20210511
  9. SODIUM CHLORIDE [Concomitant]
     Active Substance: SODIUM CHLORIDE
     Indication: Hyponatraemia
     Dosage: 680 MILLILITER, ONE DOSE
     Route: 042
     Dates: start: 20210823, end: 20210823
  10. Dolipran [Concomitant]
     Indication: Pyrexia
     Dosage: 500 MILLIGRAM, ONE DOSE
     Route: 048
     Dates: start: 20210823, end: 20210823
  11. VANCOMYCIN [Concomitant]
     Active Substance: VANCOMYCIN
     Indication: Dyspepsia
     Dosage: 250 MILLIGRAM, QD
     Route: 048
     Dates: start: 20201112, end: 20201121
  12. VANCOMYCIN [Concomitant]
     Active Substance: VANCOMYCIN
     Dosage: UNK, TID
     Route: 048
     Dates: start: 20200829, end: 20200907

REACTIONS (2)
  - Pneumonia [Recovered/Resolved]
  - Hyponatraemia [Recovered/Resolved]

NARRATIVE: CASE EVENT DATE: 20210819
